FAERS Safety Report 7888364-8 (Version None)
Quarter: 2011Q4

REPORT INFORMATION
  Report Type: 
  Country: None (occurrence: None)
  Receive Date: 20111103
  Receipt Date: 20111021
  Transmission Date: 20120403
  Serious: Yes (Other)
  Sender: FDA-Public Use
  Company Number: BR-PFIZER INC-2011266975

PATIENT
  Age: 38 Year
  Sex: Female

DRUGS (4)
  1. PROPRANOLOL HCL [Suspect]
     Indication: HYPERTENSION
     Dosage: 80 MG, 1X/DAY
     Route: 048
  2. LEVOTHYROXINE SODIUM [Suspect]
     Dosage: 75 UG, UNK
  3. ROSUVASTATIN [Suspect]
     Indication: DYSLIPIDAEMIA
     Dosage: 10 MG, UNK
     Route: 048
  4. LEVOTHYROXINE SODIUM [Suspect]
     Indication: AUTOIMMUNE THYROIDITIS
     Dosage: 50 UG, UNK

REACTIONS (4)
  - HYPERGLYCAEMIA [None]
  - HYPOGLYCAEMIA [None]
  - WEIGHT INCREASED [None]
  - BLOOD THYROID STIMULATING HORMONE INCREASED [None]
